FAERS Safety Report 5262848-3 (Version None)
Quarter: 2007Q1

REPORT INFORMATION
  Report Type: 
  Country: None (occurrence: None)
  Receive Date: 20070312
  Receipt Date: 20070302
  Transmission Date: 20070707
  Serious: Yes (Hospitalization)
  Sender: FDA-Public Use
  Company Number: JP-ROCHE-473931

PATIENT
  Sex: Female
  Weight: 42 kg

DRUGS (10)
  1. PEGASYS [Suspect]
     Route: 058
     Dates: start: 20061012, end: 20061023
  2. URSO [Concomitant]
     Dosage: THERAPY START DATE REPORTED AS BEFORE 11 OCT 2006
     Route: 048
     Dates: end: 20070213
  3. GLYCYRON [Concomitant]
     Dosage: THERAPY START DATE REPORTED AS BEFORE 11 OCT 2006
     Route: 048
     Dates: end: 20070213
  4. THEO-DUR [Concomitant]
     Dosage: THERAPY START DATE REPORTED AS BEFORE 11 OCT 2006
     Route: 048
     Dates: end: 20070105
  5. DOGMATYL [Concomitant]
     Dosage: THERAPY START DATE REPORTED AS BEFORE 11 OCT 2006
     Route: 048
     Dates: end: 20070213
  6. NORVASC [Concomitant]
     Dosage: THERAPY START DATE REPORTED AS BEFORE 11 OCT 2006
     Route: 048
  7. MEDICON [Concomitant]
     Route: 048
     Dates: start: 20061011, end: 20070105
  8. VOLTAREN [Concomitant]
     Route: 048
     Dates: start: 20061012, end: 20061020
  9. PL [Concomitant]
     Route: 048
     Dates: start: 20061011, end: 20061023
  10. MUCOSOLVAN [Concomitant]
     Route: 048
     Dates: start: 20061011, end: 20070105

REACTIONS (1)
  - BRONCHIECTASIS [None]
